FAERS Safety Report 22131567 (Version 11)
Quarter: 2025Q2

REPORT INFORMATION
  Report Type: Report from Study
  Country: CA (occurrence: CA)
  Receive Date: 20230323
  Receipt Date: 20250519
  Transmission Date: 20250716
  Serious: Yes (Other)
  Sender: TAKEDA
  Company Number: CA-TAKEDA-2023TUS029539

PATIENT
  Sex: Female

DRUGS (7)
  1. VEDOLIZUMAB [Suspect]
     Active Substance: VEDOLIZUMAB
     Indication: Colitis ulcerative
  2. VEDOLIZUMAB [Suspect]
     Active Substance: VEDOLIZUMAB
     Dosage: 300 MILLIGRAM, Q4WEEKS
     Dates: start: 20220630, end: 20230620
  3. VEDOLIZUMAB [Suspect]
     Active Substance: VEDOLIZUMAB
  4. Cortiment [Concomitant]
  5. INFLECTRA [Concomitant]
     Active Substance: INFLIXIMAB-DYYB
  6. MESALAMINE [Concomitant]
     Active Substance: MESALAMINE
  7. PENTASA [Concomitant]
     Active Substance: MESALAMINE

REACTIONS (5)
  - Crohn^s disease [Unknown]
  - Loss of therapeutic response [Unknown]
  - Defaecation urgency [Unknown]
  - Abdominal discomfort [Unknown]
  - Stomatitis [Not Recovered/Not Resolved]
